FAERS Safety Report 7588412-9 (Version None)
Quarter: 2011Q2

REPORT INFORMATION
  Report Type: 
  Country: None (occurrence: None)
  Receive Date: 20110627
  Receipt Date: 20110621
  Transmission Date: 20111010
  Serious: Yes (Hospitalization)
  Sender: FDA-Public Use
  Company Number: 1000021729

PATIENT
  Age: 68 Year
  Sex: Female

DRUGS (13)
  1. HYDROCODONE (HYDROCODONE) (HYDROCODONE) [Concomitant]
     Indication: BACK PAIN
     Dosage: 10/500 AS NEEDED (AS NEEDED)
  2. ASPIRIN [Concomitant]
     Dosage: 81 MG (81 MG, 1 IN 1 D), ORAL
     Route: 048
  3. POTASSIUM (POTASSIUM) (POTASSIUM) [Concomitant]
     Indication: ELECTROLYTE SUBSTITUTION THERAPY
     Dosage: 20 MEQ (10 MILLIEQUIVALENTS, 2 IN 1 D), ORAL
  4. LIPITOR (ATORVASTATIN CALCIUM) (TABLETS) (ATORVASTATIN CALCIUM) [Concomitant]
     Indication: BLOOD CHOLESTEROL INCREASED
     Dosage: 10 MG (10 MG, 1 IN 1 D), ORAL
     Route: 048
  5. LEXAPRO (ESCITALOPRAM OXALATE) (ESCITALOPRAM OXALATE) [Concomitant]
     Indication: DEPRESSION
     Dosage: 10 MG (10 MG, 1 IN 1 D), ORAL
  6. BYSTOLIC [Suspect]
     Indication: HYPERTENSION
     Dosage: 10 MG (10 MG, 1 IN 1 D), ORAL
     Route: 048
     Dates: start: 20110609, end: 20110609
  7. JANTOVEN (WARFARIN SODIUM) (TABLETS) (WARFARIN SODIUM) [Concomitant]
     Indication: ATRIAL FIBRILLATION
     Dosage: 10 MG (10 MG, 1 IN 1 D), ORAL
     Route: 048
  8. TORSEMIDE (TORASEMIDE) (TORASEMIDE) [Concomitant]
     Indication: OEDEMA
     Dosage: 20 MG (20 MG, 1 IN 1 D), ORAL
     Route: 048
  9. VITAMIN D3 (COLECALCIFEROL) (COLECALCIFEROL) [Concomitant]
     Indication: VITAMIN D DEFICIENCY
     Dosage: 2000 UNITS (2000 UNITS, 1 IN 1 D)
  10. LEVOTHYROXINE (LEVOTHYROXINE SODIUM) (TABLETS) (LEVOTHYROXINE SODIUM) [Concomitant]
     Indication: HYPOTHYROIDISM
     Dosage: 88 MCG (88 MCG, 1 IN 1 D), ORAL
     Route: 048
  11. DIOVAN HCT(CO-DIOVAN) (CO_DIOVAN) [Concomitant]
     Indication: HYPERTENSION
     Dosage: 320/25 (1 IN 1 D), ORAL
     Route: 048
  12. DIOVAN HCT(CO-DIOVAN) (CO_DIOVAN) [Concomitant]
     Indication: OEDEMA
     Dosage: 320/25 (1 IN 1 D), ORAL
     Route: 048
  13. DIGOXIN [Concomitant]
     Indication: ATRIAL FIBRILLATION
     Dosage: 125 MCG (125 MCG, 1 IN 1 D), ORAL
     Route: 048

REACTIONS (4)
  - BRADYCARDIA [None]
  - HYPOTENSION [None]
  - DIZZINESS [None]
  - ASTHENIA [None]
